FAERS Safety Report 6279707-X (Version None)
Quarter: 2009Q3

REPORT INFORMATION
  Report Type: 
  Country: None (occurrence: None)
  Receive Date: 20090723
  Receipt Date: 20090715
  Transmission Date: 20100115
  Serious: Yes (Other)
  Sender: FDA-Public Use
  Company Number: US-ROCHE-644460

PATIENT
  Age: 62 Year
  Sex: Male

DRUGS (7)
  1. BONIVA [Suspect]
     Indication: OSTEOPOROSIS
     Route: 048
     Dates: start: 20080701, end: 20090712
  2. OSCAL [Concomitant]
  3. ALBUTEROL [Concomitant]
  4. HYDROCHLOROTHIAZIDE [Concomitant]
  5. SPIRIVA [Concomitant]
  6. SINGULAIR [Concomitant]
  7. ADVAIR HFA [Concomitant]

REACTIONS (1)
  - OSTEOMYELITIS BACTERIAL [None]
